FAERS Safety Report 4963236-7 (Version None)
Quarter: 2006Q2

REPORT INFORMATION
  Report Type: 
  Country: None (occurrence: None)
  Receive Date: 20060405
  Receipt Date: 20050920
  Transmission Date: 20061013
  Serious: Yes (Hospitalization, Disabling)
  Sender: FDA-Public Use
  Company Number: US-MERCK-0509USA02981

PATIENT
  Age: 72 Year
  Sex: Male
  Weight: 105 kg

DRUGS (6)
  1. VIOXX [Suspect]
     Indication: OSTEOARTHRITIS
     Route: 048
     Dates: start: 19990101, end: 20040101
  2. VIOXX [Suspect]
     Route: 048
     Dates: start: 19990101, end: 20040101
  3. ZOLOFT [Concomitant]
     Indication: DEPRESSION
     Route: 065
  4. PROZAC [Concomitant]
     Indication: DEPRESSION
     Route: 065
  5. PAXIL [Concomitant]
     Indication: DEPRESSION
     Route: 065
  6. NORTRIPTYLINE [Concomitant]
     Indication: DEPRESSION
     Route: 065

REACTIONS (6)
  - CEREBROVASCULAR ACCIDENT [None]
  - CHEST PAIN [None]
  - DEPRESSION [None]
  - LUNG NEOPLASM MALIGNANT [None]
  - PROSTATIC DISORDER [None]
  - SLEEP APNOEA SYNDROME [None]
